FAERS Safety Report 19225840 (Version 1)
Quarter: 2021Q2

REPORT INFORMATION
  Report Type: Spontaneous
  Country: US (occurrence: US)
  Receive Date: 20210506
  Receipt Date: 20210506
  Transmission Date: 20210717
  Serious: No
  Sender: FDA-Public Use
  Company Number: US-PFIZER INC-2021393110

PATIENT
  Age: 64 Year
  Sex: Female
  Weight: 70.31 kg

DRUGS (1)
  1. SULFASALAZINE. [Suspect]
     Active Substance: SULFASALAZINE
     Indication: RHEUMATOID ARTHRITIS
     Dosage: 2000 MG, DAILY, TWO 500MG TABLETS IN THE MORNING AND TWO IN THE EVENING.
     Route: 048
     Dates: start: 2019

REACTIONS (1)
  - Therapeutic product effect delayed [Unknown]
